FAERS Safety Report 7803832-2 (Version None)
Quarter: 2011Q4

REPORT INFORMATION
  Report Type: 
  Country: None (occurrence: None)
  Receive Date: 20111010
  Receipt Date: 20110927
  Transmission Date: 20120403
  Serious: Yes (Hospitalization, Other)
  Sender: FDA-Public Use
  Company Number: IT-RANBAXY-2011RR-48665

PATIENT
  Age: 58 Year
  Sex: Male

DRUGS (4)
  1. CHLORPHENIRAMINE/ PARACETAMOL [Concomitant]
     Indication: OROPHARYNGEAL PAIN
     Route: 048
  2. AMOXICILLIN [Suspect]
     Indication: ACCIDENTAL EXPOSURE
     Dosage: UNK G, UNK
     Route: 062
  3. AMOXICILLIN AND CLAVULANATE POTASSIUM [Suspect]
     Indication: OROPHARYNGEAL PAIN
     Dosage: 1 G, UNK
     Route: 048
  4. AMOXICILLIN [Suspect]
     Indication: TOOTHACHE
     Dosage: 1 G, UNK
     Route: 065

REACTIONS (3)
  - ACUTE MYOCARDIAL INFARCTION [None]
  - DRUG HYPERSENSITIVITY [None]
  - ANAPHYLACTIC REACTION [None]
